FAERS Safety Report 12455519 (Version 1)
Quarter: 2016Q2

REPORT INFORMATION
  Report Type: Spontaneous
  Country: US (occurrence: None)
  Receive Date: 20160609
  Receipt Date: 20160609
  Transmission Date: 20160815
  Serious: No
  Sender: FDA-Public Use
  Company Number: None

PATIENT

DRUGS (2)
  1. ONDANSETRON [Suspect]
     Active Substance: ONDANSETRON
     Dosage: TABLET, ORALLY DISINTEGRATING
     Route: 048
  2. OLANZAPINE. [Suspect]
     Active Substance: OLANZAPINE
     Dosage: TABLET, ORALLY DISINTEGRATING
     Route: 048

REACTIONS (4)
  - Incorrect product storage [None]
  - Product packaging confusion [None]
  - Drug dispensing error [None]
  - Intercepted drug administration error [None]
